FAERS Safety Report 17799786 (Version 2)
Quarter: 2020Q2

REPORT INFORMATION
  Report Type: Spontaneous
  Country: US (occurrence: US)
  Receive Date: 20200518
  Receipt Date: 20200613
  Transmission Date: 20200714
  Serious: No
  Sender: FDA-Public Use
  Company Number: US-ASTRAZENECA-2020SE62797

PATIENT
  Sex: Male
  Weight: 90.7 kg

DRUGS (5)
  1. SYMBICORT [Suspect]
     Active Substance: BUDESONIDE\FORMOTEROL FUMARATE DIHYDRATE
     Indication: ASTHMA
     Dosage: 160 MCG/4.5 MCG,2 PUFFS, TWICE DAILY
     Route: 055
     Dates: start: 20200501, end: 20200507
  2. ZYRTEC [Concomitant]
     Active Substance: CETIRIZINE HYDROCHLORIDE
     Indication: HYPERSENSITIVITY
     Dosage: AS REQUIRED
     Route: 048
  3. SYMBICORT [Suspect]
     Active Substance: BUDESONIDE\FORMOTEROL FUMARATE DIHYDRATE
     Indication: ASTHMA
     Dosage: 160 MCG/4.5 MCG,1 PUFFS, TWICE DAILY
     Route: 055
  4. FLONASE [Concomitant]
     Active Substance: FLUTICASONE PROPIONATE
     Indication: HYPERSENSITIVITY
     Dosage: AS REQUIRED
     Route: 045
  5. ADVIL [Concomitant]
     Active Substance: IBUPROFEN
     Indication: ARTHRITIS
     Dosage: AS REQUIRED
     Route: 048

REACTIONS (3)
  - Intentional device misuse [Unknown]
  - Drug ineffective [Unknown]
  - Wrong technique in device usage process [Unknown]
